FAERS Safety Report 17607545 (Version 1)
Quarter: 2020Q2

REPORT INFORMATION
  Report Type: Spontaneous
  Country: US (occurrence: US)
  Receive Date: 20200401
  Receipt Date: 20200401
  Transmission Date: 20200713
  Serious: No
  Sender: FDA-Public Use
  Company Number: US-009507513-2003USA011098

PATIENT
  Sex: Female

DRUGS (2)
  1. KEYTRUDA [Suspect]
     Active Substance: PEMBROLIZUMAB
     Dosage: UNK
  2. INLYTA [Concomitant]
     Active Substance: AXITINIB
     Dosage: UNK

REACTIONS (4)
  - Circumstance or information capable of leading to medication error [Unknown]
  - Product dose omission [Unknown]
  - Fatigue [Recovered/Resolved]
  - Pyrexia [Recovered/Resolved]
